FAERS Safety Report 9567064 (Version 1)
Quarter: 2013Q3

REPORT INFORMATION
  Report Type: Spontaneous
  Country: US (occurrence: US)
  Receive Date: 20130930
  Receipt Date: 20130930
  Transmission Date: 20140515
  Serious: No
  Sender: FDA-Public Use
  Company Number: US-AMGEN-USASP2012061035

PATIENT
  Age: 66 Year
  Sex: Female
  Weight: 95.24 kg

DRUGS (5)
  1. ENBREL [Suspect]
     Indication: PRODUCT USED FOR UNKNOWN INDICATION
     Dosage: 50 MG, QWK
     Route: 058
  2. TENEX [Concomitant]
     Dosage: 1 MG, UNK
  3. ONGLYZA [Concomitant]
     Dosage: UNK
  4. GLUCOPHAGE [Concomitant]
     Dosage: 500 MG, UNK
  5. MAXIDEX                            /00016001/ [Concomitant]
     Dosage: 0.1 %, UNK

REACTIONS (1)
  - Influenza [Unknown]
